FAERS Safety Report 7457449-2 (Version None)
Quarter: 2011Q2

REPORT INFORMATION
  Report Type: 
  Country: None (occurrence: None)
  Receive Date: 20110504
  Receipt Date: 20110421
  Transmission Date: 20111010
  Serious: No
  Sender: FDA-Public Use
  Company Number: US-B.I. PHARMACEUTICALS,INC./RIDGEFIELD-2011-BP-06069BP

PATIENT
  Sex: Female

DRUGS (9)
  1. AMAODERONE [Concomitant]
  2. TRAMADOL [Concomitant]
  3. PRADAXA [Suspect]
     Indication: ANTICOAGULANT THERAPY
  4. DIAURETEC [Concomitant]
  5. LIPITOR [Concomitant]
  6. TOPROL-XL [Concomitant]
  7. NOVASC [Concomitant]
  8. ZETIA [Concomitant]
  9. SYNTHROID [Concomitant]

REACTIONS (1)
  - THROAT IRRITATION [None]
